FAERS Safety Report 10073784 (Version 1)
Quarter: 2014Q2

REPORT INFORMATION
  Report Type: Spontaneous
  Country: DE (occurrence: DE)
  Receive Date: 20140411
  Receipt Date: 20140411
  Transmission Date: 20141212
  Serious: Yes (Congenital Anomaly, Other)
  Sender: FDA-Public Use
  Company Number: DE-ABBVIE-14P-062-1225205-00

PATIENT
  Sex: Male

DRUGS (2)
  1. VALPROATE SODIUM [Suspect]
     Indication: MATERNAL EXPOSURE TIMING UNSPECIFIED
     Route: 064
  2. LAMOTRIGINE [Suspect]
     Indication: MATERNAL EXPOSURE TIMING UNSPECIFIED
     Route: 064

REACTIONS (20)
  - Neonatal respiratory distress syndrome [Recovered/Resolved]
  - Hypotonia neonatal [Unknown]
  - Hypoglycaemia neonatal [Recovered/Resolved]
  - Cardiac septal hypertrophy [Unknown]
  - Agitation neonatal [Recovered/Resolved]
  - Atrial septal defect [Unknown]
  - Microphthalmos [Unknown]
  - Dysmorphism [Not Recovered/Not Resolved]
  - Dysmorphism [Unknown]
  - Hypertelorism of orbit [Unknown]
  - Dysmorphism [Unknown]
  - Congenital nose malformation [Unknown]
  - Low set ears [Unknown]
  - Dysplasia [Unknown]
  - Feeling jittery [Unknown]
  - Foetal exposure during pregnancy [Unknown]
  - Hair growth abnormal [Unknown]
  - Foetal macrosomia [Unknown]
  - Large for dates baby [Unknown]
  - Somnolence [Unknown]
